FAERS Safety Report 18367030 (Version 1)
Quarter: 2020Q4

REPORT INFORMATION
  Report Type: Spontaneous
  Country: US (occurrence: US)
  Receive Date: 20201009
  Receipt Date: 20201009
  Transmission Date: 20210114
  Serious: Yes (Other)
  Sender: FDA-Public Use
  Company Number: US-SA-2020SA274008

PATIENT

DRUGS (4)
  1. TOUJEO [Suspect]
     Active Substance: INSULIN GLARGINE
     Indication: TYPE 2 DIABETES MELLITUS
     Dosage: 10 IU, QD
     Route: 065
     Dates: start: 202008
  2. TOUJEO [Suspect]
     Active Substance: INSULIN GLARGINE
     Dosage: CHANGED TO EVERY SEVEN DAYS BY TWO UNITS
     Route: 065
  3. TOUJEO [Suspect]
     Active Substance: INSULIN GLARGINE
     Dosage: 10 TO 13 IU, HS
     Route: 065
  4. TOUJEO [Suspect]
     Active Substance: INSULIN GLARGINE
     Dosage: 16 IU, HS
     Route: 065

REACTIONS (3)
  - Prostate cancer [Unknown]
  - Blood glucose decreased [Unknown]
  - Blood glucose increased [Unknown]
